FAERS Safety Report 11985561 (Version 2)
Quarter: 2016Q1

REPORT INFORMATION
  Report Type: Spontaneous
  Country: IN (occurrence: IN)
  Receive Date: 20160201
  Receipt Date: 20160209
  Transmission Date: 20160526
  Serious: Yes (Life-Threatening, Hospitalization)
  Sender: FDA-Public Use
  Company Number: IN-BAUSCH-BL-2016-001979

PATIENT
  Age: 24 Year
  Sex: Female

DRUGS (1)
  1. DILTIAZEM [Suspect]
     Active Substance: DILTIAZEM
     Indication: SUICIDE ATTEMPT
     Route: 065

REACTIONS (10)
  - Cardiac arrest [Recovering/Resolving]
  - Respiratory rate decreased [Recovering/Resolving]
  - Atrioventricular dissociation [Recovering/Resolving]
  - Heart rate decreased [Recovering/Resolving]
  - Atrioventricular block complete [Recovering/Resolving]
  - Shock [Recovering/Resolving]
  - Toxicity to various agents [Recovering/Resolving]
  - Blood glucose increased [Recovering/Resolving]
  - Cerebral hypoperfusion [Recovering/Resolving]
  - Metabolic acidosis [Recovering/Resolving]
